FAERS Safety Report 8173823-3 (Version None)
Quarter: 2012Q1

REPORT INFORMATION
  Report Type: 
  Country: None (occurrence: None)
  Receive Date: 20120229
  Receipt Date: 20120220
  Transmission Date: 20120608
  Serious: Yes (Hospitalization, Other)
  Sender: FDA-Public Use
  Company Number: US-ELI_LILLY_AND_COMPANY-US201010006036

PATIENT
  Sex: Female
  Weight: 79.002 kg

DRUGS (15)
  1. VITAMIN B-12 [Concomitant]
  2. CORTISONE ACETATE [Concomitant]
     Indication: ARTHRITIS
  3. FORTEO [Suspect]
     Indication: OSTEOPOROSIS
     Dosage: 20 UG, DAILY (1/D)
     Dates: start: 20101019
  4. PREDNISONE TAB [Concomitant]
  5. VITAMIN D [Concomitant]
  6. RITUXAN [Concomitant]
     Indication: VASCULITIS
  7. FORTEO [Suspect]
     Dosage: 20 UG, QD
  8. PRANDIN [Concomitant]
     Dosage: 2 MG, UNKNOWN
  9. OXYGEN [Concomitant]
  10. CYCLOPHOSPHAMIDE [Concomitant]
     Indication: VASCULITIS
     Dosage: UNK, OTHER
     Dates: start: 20090101
  11. FORTEO [Suspect]
     Dosage: 20 UG, QD
  12. TIDACT                             /00166002/ [Concomitant]
  13. CIPRO [Concomitant]
     Dosage: 500 MG, BID
  14. ENALAPRIL MALEATE [Concomitant]
     Dosage: 40 MG, QD
  15. FORTEO [Suspect]
     Dosage: 20 UG, QD

REACTIONS (11)
  - INCREASED TENDENCY TO BRUISE [None]
  - INJECTION SITE PAIN [None]
  - HOSPITALISATION [None]
  - ARTHRITIS [None]
  - INJECTION SITE HAEMATOMA [None]
  - TACHYCARDIA [None]
  - PLATELET COUNT DECREASED [None]
  - ANAEMIA [None]
  - MALAISE [None]
  - HYPOTENSION [None]
  - NAUSEA [None]
